FAERS Safety Report 17198465 (Version 1)
Quarter: 2019Q4

REPORT INFORMATION
  Report Type: Spontaneous
  Country: SE (occurrence: SE)
  Receive Date: 20191225
  Receipt Date: 20191225
  Transmission Date: 20200122
  Serious: Yes (Hospitalization)
  Sender: FDA-Public Use
  Company Number: SE-TEVA-2019-SE-1155939

PATIENT
  Sex: Female

DRUGS (8)
  1. RAMIPRIL. [Suspect]
     Active Substance: RAMIPRIL
     Dosage: 2 ST
     Route: 048
     Dates: start: 20180530, end: 20180530
  2. CIPRAMIL (CITALOPRAM HYDROBROMIDE) [Suspect]
     Active Substance: CITALOPRAM HYDROBROMIDE
     Dosage: 80 MILLIGRAM
     Route: 048
     Dates: start: 20180530, end: 20180530
  3. SIMVASTATIN. [Concomitant]
     Active Substance: SIMVASTATIN
     Dosage: ^NORMAL^
  4. PROPAVAN [Suspect]
     Active Substance: PROPIOMAZINE
     Dosage: 100 MILLIGRAM
     Route: 048
     Dates: start: 20180530, end: 20180530
  5. THERALEN [Concomitant]
     Active Substance: TRIMEPRAZINE
     Dosage: ^NORMAL^
  6. IMDUR [Suspect]
     Active Substance: ISOSORBIDE MONONITRATE
     Route: 048
     Dates: start: 20180530, end: 20180530
  7. IMOVANE [Suspect]
     Active Substance: ZOPICLONE
     Dosage: 15 MILLIGRAM
     Route: 048
     Dates: start: 20180530, end: 20180530
  8. STESOLID [Suspect]
     Active Substance: DIAZEPAM
     Dosage: 25 MILLIGRAM
     Route: 048
     Dates: start: 20180530, end: 20180530

REACTIONS (2)
  - Fatigue [Unknown]
  - Intentional overdose [Unknown]

NARRATIVE: CASE EVENT DATE: 20180530
